FAERS Safety Report 18642815 (Version 2)
Quarter: 2021Q1

REPORT INFORMATION
  Report Type: Spontaneous
  Country: US (occurrence: US)
  Receive Date: 20201221
  Receipt Date: 20210115
  Transmission Date: 20210419
  Serious: No
  Sender: FDA-Public Use
  Company Number: US-ALXN-A202018778

PATIENT

DRUGS (1)
  1. ANDEXXA [Suspect]
     Active Substance: ANDEXANET ALFA
     Indication: PRODUCT USED FOR UNKNOWN INDICATION
     Dosage: UNK
     Route: 065

REACTIONS (1)
  - Product temperature excursion issue [Unknown]

NARRATIVE: CASE EVENT DATE: 20201212
